FAERS Safety Report 24589624 (Version 2)
Quarter: 2025Q1

REPORT INFORMATION
  Report Type: Spontaneous
  Country: US (occurrence: US)
  Receive Date: 20241107
  Receipt Date: 20250325
  Transmission Date: 20250408
  Serious: No
  Sender: PFIZER
  Company Number: US-PFIZER INC-PV202400126731

PATIENT
  Age: 54 Year
  Sex: Male

DRUGS (5)
  1. XELJANZ XR [Suspect]
     Active Substance: TOFACITINIB CITRATE
     Indication: Rheumatoid arthritis
     Dosage: 11 MG, 1X/DAY
     Route: 048
     Dates: start: 20240923
  2. XELJANZ XR [Suspect]
     Active Substance: TOFACITINIB CITRATE
     Dosage: 11 MG, 1X/DAY
     Route: 048
     Dates: start: 20240923
  3. XELJANZ XR [Suspect]
     Active Substance: TOFACITINIB CITRATE
     Dosage: 11 MG, 1X/DAY
     Route: 048
     Dates: start: 20240923, end: 202501
  4. ENBREL [Concomitant]
     Active Substance: ETANERCEPT
  5. PREDNISONE [Concomitant]
     Active Substance: PREDNISONE

REACTIONS (1)
  - Condition aggravated [Not Recovered/Not Resolved]
